FAERS Safety Report 25566208 (Version 1)
Quarter: 2025Q3

REPORT INFORMATION
  Report Type: Spontaneous
  Country: None (occurrence: US)
  Receive Date: 20250716
  Receipt Date: 20250716
  Transmission Date: 20251020
  Serious: No
  Sender: NOVO NORDISK
  Company Number: US-NOVOPROD-1336093

PATIENT
  Sex: Female

DRUGS (4)
  1. OZEMPIC [Suspect]
     Active Substance: SEMAGLUTIDE
     Indication: Type 2 diabetes mellitus
     Route: 058
  2. OZEMPIC [Suspect]
     Active Substance: SEMAGLUTIDE
     Dosage: 2 MG, QW
  3. LANTUS [Concomitant]
     Active Substance: INSULIN GLARGINE
  4. INSULIN LISPRO [Concomitant]
     Active Substance: INSULIN LISPRO

REACTIONS (5)
  - Weight fluctuation [Unknown]
  - Diarrhoea [Unknown]
  - Off label use [Unknown]
  - Product label confusion [Unknown]
  - Wrong technique in product usage process [Unknown]
